FAERS Safety Report 19723851 (Version 1)
Quarter: 2021Q3

REPORT INFORMATION
  Report Type: Other
  Country: US (occurrence: US)
  Receive Date: 20210820
  Receipt Date: 20210820
  Transmission Date: 20211014
  Serious: No
  Sender: FDA-Public Use
  Company Number: US-ROCHE-2893237

PATIENT
  Sex: Female

DRUGS (4)
  1. BACLOFEN. [Concomitant]
     Active Substance: BACLOFEN
  2. OCREVUS [Suspect]
     Active Substance: OCRELIZUMAB
     Indication: MULTIPLE SCLEROSIS
     Dosage: (PRESCRIBED AS 300 MG ON DAY 1 AND DAY 15 AND 600 MG ONCE IN 6 MONTHS)
     Route: 042
  3. CITALOPRAM [Concomitant]
     Active Substance: CITALOPRAM HYDROBROMIDE
  4. PROVIGIL [Concomitant]
     Active Substance: MODAFINIL

REACTIONS (5)
  - Muscle spasticity [Unknown]
  - Constipation [Unknown]
  - Neurogenic bowel [Unknown]
  - Gait disturbance [Unknown]
  - COVID-19 [Recovered/Resolved]
